FAERS Safety Report 11090814 (Version 2)
Quarter: 2015Q2

REPORT INFORMATION
  Report Type: Spontaneous
  Country: US (occurrence: US)
  Receive Date: 20150505
  Receipt Date: 20150508
  Transmission Date: 20150821
  Serious: No
  Sender: FDA-Public Use
  Company Number: CHPA2015US005813

PATIENT
  Age: 61 Year
  Sex: Male

DRUGS (3)
  1. VOLTAREN [Suspect]
     Active Substance: DICLOFENAC SODIUM
     Indication: ARTHRITIS
     Dosage: DIME SIZED AMOUNT, UNK
     Route: 061
     Dates: start: 20150420
  2. BUFFERIN [Concomitant]
     Active Substance: ASPIRIN
     Indication: PRODUCT USED FOR UNKNOWN INDICATION
     Dosage: UNK
     Route: 065
  3. BABY ASPIRIN [Concomitant]
     Active Substance: ASPIRIN
     Indication: PRODUCT USED FOR UNKNOWN INDICATION
     Dosage: UNK
     Route: 065

REACTIONS (4)
  - Drug administered at inappropriate site [Unknown]
  - Off label use [Unknown]
  - Pain [Not Recovered/Not Resolved]
  - Wrong technique in drug usage process [Unknown]

NARRATIVE: CASE EVENT DATE: 20150420
